FAERS Safety Report 7595699-5 (Version None)
Quarter: 2011Q3

REPORT INFORMATION
  Report Type: 
  Country: None (occurrence: None)
  Receive Date: 20110707
  Receipt Date: 20110621
  Transmission Date: 20111222
  Serious: No
  Sender: FDA-Public Use
  Company Number: US-B.I. PHARMACEUTICALS,INC./RIDGEFIELD-2011-BP-13658BP

PATIENT

DRUGS (6)
  1. FINASTERIDE [Concomitant]
     Indication: PROSTATIC DISORDER
     Dosage: 5 MG
     Route: 048
  2. GEMFIBROZIL [Concomitant]
     Indication: BLOOD TRIGLYCERIDES INCREASED
     Dosage: 1200 MG
     Route: 048
  3. METFORMIN HCL [Concomitant]
     Indication: DIABETES MELLITUS
     Dosage: 1000 MG
     Route: 048
  4. CILOSTAZOL [Concomitant]
     Indication: INTERMITTENT CLAUDICATION
     Dosage: 100 MG
     Route: 048
  5. TAMSULOSIN HCL [Concomitant]
     Indication: PROSTATIC DISORDER
     Dosage: 0.8 MG
     Route: 048
     Dates: start: 20110518
  6. PRADAXA [Suspect]
     Indication: ATRIAL FIBRILLATION
     Dosage: 300 MG
     Route: 048
     Dates: start: 20110508

REACTIONS (3)
  - ABDOMINAL DISCOMFORT [None]
  - DECREASED APPETITE [None]
  - CONSTIPATION [None]
